FAERS Safety Report 13095997 (Version 1)
Quarter: 2017Q1

REPORT INFORMATION
  Report Type: Spontaneous
  Country: FR (occurrence: FR)
  Receive Date: 20170109
  Receipt Date: 20170109
  Transmission Date: 20170428
  Serious: Yes (Other)
  Sender: FDA-Public Use
  Company Number: FR-CONCORDIA PHARMACEUTICALS INC.-GSH201701-000044

PATIENT
  Age: 76 Year
  Sex: Male

DRUGS (8)
  1. IMOVANE [Concomitant]
     Active Substance: ZOPICLONE
     Indication: INSOMNIA
  2. LOVENOX [Concomitant]
     Active Substance: ENOXAPARIN SODIUM
     Dates: end: 20161207
  3. EXTRANASE [Concomitant]
     Active Substance: BROMELAINS
     Indication: OEDEMA PERIPHERAL
  4. ALFUZOSIN EXTENDED-RELEASE TABLET 10 MG [Suspect]
     Active Substance: ALFUZOSIN
     Indication: URINARY TRACT DISORDER
     Route: 048
     Dates: start: 20161118, end: 20161130
  5. ATENOLOL. [Concomitant]
     Active Substance: ATENOLOL
  6. LANSOPRAZOLE. [Concomitant]
     Active Substance: LANSOPRAZOLE
     Indication: DYSPEPSIA
     Dates: end: 20161206
  7. NEFOPAM [Concomitant]
     Active Substance: NEFOPAM
     Dates: end: 20161118
  8. CONTRAMAL [Concomitant]
     Active Substance: TRAMADOL HYDROCHLORIDE
     Dates: end: 20161118

REACTIONS (1)
  - Neutropenia [Recovered/Resolved]

NARRATIVE: CASE EVENT DATE: 20161128
